FAERS Safety Report 6939508-3 (Version None)
Quarter: 2010Q3

REPORT INFORMATION
  Report Type: 
  Country: None (occurrence: None)
  Receive Date: 20100819
  Receipt Date: 20100804
  Transmission Date: 20110219
  Serious: Yes (Hospitalization)
  Sender: FDA-Public Use
  Company Number: 1000015586

PATIENT
  Age: 63 Year
  Sex: Female

DRUGS (5)
  1. MEMANTINE HCL [Suspect]
     Indication: DEMENTIA ALZHEIMER'S TYPE
     Dosage: 20 MG (10 MG,2 IN 1 D),ORAL
     Route: 048
  2. MEMANTINE HCL [Suspect]
     Indication: DEMENTIA ALZHEIMER'S TYPE
     Dosage: 10 MG, (5 MG,2 IN 1 D),ORAL
     Route: 048
  3. LITHIUM CARBONATE [Suspect]
     Indication: BIPOLAR I DISORDER
     Dosage: 900 MG (900 MG,1 IN 1 D)
  4. QUETIAPINE [Suspect]
     Indication: BIPOLAR I DISORDER
     Dosage: 400 MG (400 MG,1 IN 1 D)
  5. LAMOTRIGINE [Suspect]
     Indication: BIPOLAR I DISORDER
     Dosage: 150 MG (150 MG,1 IN 1 D)

REACTIONS (11)
  - ABNORMAL BEHAVIOUR [None]
  - ANAEMIA [None]
  - APATHY [None]
  - APHASIA [None]
  - DEMENTIA [None]
  - DISINHIBITION [None]
  - DISTURBANCE IN ATTENTION [None]
  - DRUG INTERACTION [None]
  - HALLUCINATION, AUDITORY [None]
  - MEMORY IMPAIRMENT [None]
  - PERSECUTORY DELUSION [None]
